FAERS Safety Report 8402050-7 (Version None)
Quarter: 2012Q2

REPORT INFORMATION
  Report Type: 
  Country: None (occurrence: None)
  Receive Date: 20120601
  Receipt Date: 20120521
  Transmission Date: 20120825
  Serious: Yes (Hospitalization)
  Sender: FDA-Public Use
  Company Number: US-US-EMD SERONO, INC.-7126528

PATIENT
  Sex: Male

DRUGS (18)
  1. MEGACE [Concomitant]
     Indication: PRODUCT USED FOR UNKNOWN INDICATION
  2. VALTREX [Concomitant]
     Indication: PRODUCT USED FOR UNKNOWN INDICATION
  3. HEPARIN LOCK-FLUSH [Concomitant]
     Indication: PRODUCT USED FOR UNKNOWN INDICATION
  4. TRAZODONE HCL [Concomitant]
     Indication: PRODUCT USED FOR UNKNOWN INDICATION
  5. VANTIN [Concomitant]
     Indication: PRODUCT USED FOR UNKNOWN INDICATION
  6. ETOPOSIDE [Suspect]
     Indication: ACUTE MYELOID LEUKAEMIA
     Route: 042
     Dates: start: 20111114, end: 20111118
  7. PROGRAF [Concomitant]
     Indication: PRODUCT USED FOR UNKNOWN INDICATION
  8. REMERON [Concomitant]
     Indication: PRODUCT USED FOR UNKNOWN INDICATION
  9. CYTARABINE [Suspect]
     Indication: ACUTE MYELOID LEUKAEMIA
     Route: 042
     Dates: start: 20111114, end: 20111118
  10. CALCIUM CARBONATE [Concomitant]
     Indication: PRODUCT USED FOR UNKNOWN INDICATION
  11. PRED FORTE [Concomitant]
     Indication: PRODUCT USED FOR UNKNOWN INDICATION
  12. NICOTINE [Concomitant]
     Indication: PRODUCT USED FOR UNKNOWN INDICATION
  13. VFEND [Concomitant]
     Indication: PRODUCT USED FOR UNKNOWN INDICATION
  14. MAGNESIUM [Concomitant]
     Indication: PRODUCT USED FOR UNKNOWN INDICATION
  15. ZOFRAN [Concomitant]
     Indication: PRODUCT USED FOR UNKNOWN INDICATION
  16. NOVANTRONE [Suspect]
     Indication: ACUTE MYELOID LEUKAEMIA
     Route: 042
     Dates: start: 20111114, end: 20111118
  17. MDX-1338 [Suspect]
     Indication: ACUTE MYELOID LEUKAEMIA
     Route: 042
     Dates: start: 20111107, end: 20111114
  18. MIRALAX [Concomitant]
     Indication: PRODUCT USED FOR UNKNOWN INDICATION

REACTIONS (2)
  - LUNG INFECTION [None]
  - SEPSIS [None]
